FAERS Safety Report 6006784-3 (Version None)
Quarter: 2008Q4

REPORT INFORMATION
  Report Type: 
  Country: None (occurrence: None)
  Receive Date: 20081217
  Receipt Date: 20081210
  Transmission Date: 20090506
  Serious: Yes (Other)
  Sender: FDA-Public Use
  Company Number: PHHY2008BR31585

PATIENT
  Age: 71 Year
  Sex: Female

DRUGS (6)
  1. GALVUS [Suspect]
     Indication: HYPERGLYCAEMIA
     Dosage: 1 DF, QD
     Route: 048
     Dates: end: 20081020
  2. DIOVAN [Suspect]
     Indication: HYPERTENSION
     Dosage: 1 TAB MORNING AND 1 TAB AT NIGHT
     Route: 048
  3. PURAN T4 [Concomitant]
     Indication: THYROID DISORDER
     Dosage: 1 TAB IN FASTING
     Route: 048
  4. GLUCOFORMIN [Concomitant]
     Indication: DIABETES MELLITUS
     Dosage: 3 DF, DAILY
     Route: 048
  5. MANIDIPINE [Concomitant]
     Indication: HYPERTENSION
     Dosage: UNK
     Route: 048
     Dates: start: 20080401
  6. OMEPRAZOLE [Concomitant]
     Indication: ABDOMINAL PAIN UPPER
     Dosage: 1 DF, QD
     Route: 048
     Dates: start: 20080801

REACTIONS (5)
  - ABDOMINAL PAIN UPPER [None]
  - ASTHENIA [None]
  - HYPOGLYCAEMIA [None]
  - SWELLING [None]
  - WEIGHT INCREASED [None]
